FAERS Safety Report 8478163-0 (Version None)
Quarter: 2012Q2

REPORT INFORMATION
  Report Type: 
  Country: None (occurrence: None)
  Receive Date: 20120629
  Receipt Date: 20120626
  Transmission Date: 20120825
  Serious: Yes (Other)
  Sender: FDA-Public Use
  Company Number: PHHY2012BR055223

PATIENT
  Sex: Male

DRUGS (3)
  1. RASILEZ [Suspect]
  2. SUSTRATE [Concomitant]
  3. METFORMIN HCL [Suspect]

REACTIONS (3)
  - DYSPNOEA [None]
  - MALAISE [None]
  - FATIGUE [None]
